FAERS Safety Report 5158155-X (Version None)
Quarter: 2006Q4

REPORT INFORMATION
  Report Type: 
  Country: None (occurrence: None)
  Receive Date: 20061120
  Receipt Date: 20061120
  Transmission Date: 20070319
  Serious: Yes (Hospitalization)
  Sender: FDA-Public Use
  Company Number: None

PATIENT
  Age: 61 Year
  Sex: Female

DRUGS (2)
  1. TEQUIN [Suspect]
     Indication: SINUSITIS
  2. AMOXICILLIN [Suspect]
     Indication: SINUSITIS

REACTIONS (1)
  - JAUNDICE CHOLESTATIC [None]
